FAERS Safety Report 4668432-4 (Version None)
Quarter: 2005Q2

REPORT INFORMATION
  Report Type: 
  Country: None (occurrence: None)
  Receive Date: 20050519
  Receipt Date: 20050518
  Transmission Date: 20051028
  Serious: Yes (Death)
  Sender: FDA-Public Use
  Company Number: USA-2004-0018186

PATIENT
  Age: 46 Year
  Sex: Male

DRUGS (10)
  1. OXYCONTIN [Suspect]
     Indication: PAIN
     Dosage: 80 MG, Q8H, UNK
     Dates: start: 20030616
  2. FIORICET [Suspect]
  3. MEPROBAMATE [Suspect]
  4. LORTAB [Suspect]
     Indication: BACK PAIN
     Dosage: 10 MG, THRICE,
  5. SOMA [Suspect]
     Indication: BACK PAIN
     Dosage: 350 MG, QID, UNK
  6. PROTONIX [Concomitant]
  7. BEXTRA [Concomitant]
  8. ADVAIR (SALMETEROL XINAFOATE, FLUTICASONE PROPIONATE) [Concomitant]
  9. COMBIVENT [Concomitant]
  10. VALIUM [Concomitant]

REACTIONS (4)
  - COMPLETED SUICIDE [None]
  - DRUG TOXICITY [None]
  - INTENTIONAL MISUSE [None]
  - MULTIPLE DRUG OVERDOSE [None]
